FAERS Safety Report 4944999-3 (Version None)
Quarter: 2006Q1

REPORT INFORMATION
  Report Type: 
  Country: None (occurrence: None)
  Receive Date: 20060117
  Receipt Date: 20050727
  Transmission Date: 20060701
  Serious: Yes (Hospitalization)
  Sender: FDA-Public Use
  Company Number: A03200502294

PATIENT
  Age: 60 Year
  Sex: Female
  Weight: 75.28 kg

DRUGS (7)
  1. PLAVIX [Suspect]
     Indication: ATRIAL FIBRILLATION
     Dosage: 75 MG QD - ORAL
     Route: 048
     Dates: start: 20030101, end: 20040101
  2. PLAVIX [Suspect]
     Indication: TRANSIENT ISCHAEMIC ATTACK
     Dosage: 75 MG QD - ORAL
     Route: 048
     Dates: start: 20030101, end: 20040101
  3. PYRIDOSTIGMINE BROMIDE [Concomitant]
  4. EZETIMIBE [Concomitant]
  5. DIGOXIN [Concomitant]
  6. FLECAINIDE ACETATE [Concomitant]
  7. PAROXETINE HYDROCHLORIDE [Concomitant]

REACTIONS (1)
  - TRANSIENT ISCHAEMIC ATTACK [None]
